FAERS Safety Report 4629395-0 (Version None)
Quarter: 2005Q2

REPORT INFORMATION
  Report Type: 
  Country: None (occurrence: None)
  Receive Date: 20050405
  Receipt Date: 20050322
  Transmission Date: 20051028
  Serious: No
  Sender: FDA-Public Use
  Company Number: 2005SE01772

PATIENT
  Age: 28 Year
  Sex: Female

DRUGS (3)
  1. PROPOFOL [Suspect]
     Indication: ANAESTHESIA
     Dates: start: 20050104, end: 20050104
  2. REMIFENTANIL [Suspect]
     Indication: ANAESTHESIA
     Dates: start: 20050104, end: 20050104
  3. SELO-AOK [Concomitant]

REACTIONS (4)
  - NAUSEA [None]
  - OBSTRUCTION [None]
  - PRURITUS [None]
  - THROAT TIGHTNESS [None]
